FAERS Safety Report 7068951-X (Version None)
Quarter: 2010Q4

REPORT INFORMATION
  Report Type: 
  Country: None (occurrence: None)
  Receive Date: 20101028
  Receipt Date: 20101020
  Transmission Date: 20110411
  Serious: Yes (Hospitalization, Other)
  Sender: FDA-Public Use
  Company Number: DE-ABBOTT-10P-062-0675920-00

PATIENT
  Sex: Female
  Weight: 70 kg

DRUGS (2)
  1. HUMIRA [Suspect]
     Indication: RHEUMATOID ARTHRITIS
     Route: 058
     Dates: start: 20100114, end: 20100830
  2. HUMIRA [Suspect]
     Route: 058
     Dates: start: 20100928

REACTIONS (2)
  - MEDICAL DEVICE COMPLICATION [None]
  - MUSCULOSKELETAL STIFFNESS [None]
